FAERS Safety Report 21814628 (Version 1)
Quarter: 2023Q1

REPORT INFORMATION
  Report Type: Spontaneous
  Country: US (occurrence: US)
  Receive Date: 20230104
  Receipt Date: 20230104
  Transmission Date: 20230417
  Serious: Yes (Other)
  Sender: FDA-Public Use
  Company Number: US-drreddys-LIT/USA/22/0159192

PATIENT
  Sex: Male

DRUGS (17)
  1. DOXORUBICIN HYDROCHLORIDE [Suspect]
     Active Substance: DOXORUBICIN HYDROCHLORIDE
     Indication: Non-Hodgkin^s lymphoma stage IV
     Dosage: R-CHOP REGIMEN FOR SIX CYCLES
  2. RITUXIMAB [Suspect]
     Active Substance: RITUXIMAB
     Indication: Non-Hodgkin^s lymphoma stage IV
     Dosage: R-CHOP REGIMEN FOR SIX CYCLES
  3. CYCLOPHOSPHAMIDE [Suspect]
     Active Substance: CYCLOPHOSPHAMIDE
     Indication: Non-Hodgkin^s lymphoma stage IV
     Dosage: R-CHOP REGIMEN FOR SIX CYCLES
  4. VINCRISTINE [Suspect]
     Active Substance: VINCRISTINE
     Indication: Non-Hodgkin^s lymphoma stage IV
     Dosage: R-CHOP REGIMEN FOR SIX CYCLES
  5. VINCRISTINE [Suspect]
     Active Substance: VINCRISTINE
     Dosage: 1.4 MG/M2 ON DAY 1 OF WEEKS 1, 3, 5, 7 AND 9
     Route: 042
  6. PREDNISONE [Suspect]
     Active Substance: PREDNISONE
     Indication: Non-Hodgkin^s lymphoma stage IV
     Dosage: R-CHOP REGIMEN FOR SIX CYCLES
  7. METHOTREXATE [Suspect]
     Active Substance: METHOTREXATE
     Indication: Non-Hodgkin^s lymphoma stage IV
     Dosage: 2500 MG/M2 ON DAY 1 OF THE WEEKS 1, 3, 5, 7 AND 9
     Route: 042
  8. METHOTREXATE [Suspect]
     Active Substance: METHOTREXATE
     Dosage: 12MG ON DAY 1 OF WEEK 2, 4, 6 AND 8
     Route: 037
  9. PROCARBAZINE [Suspect]
     Active Substance: PROCARBAZINE
     Indication: Non-Hodgkin^s lymphoma stage IV
     Dosage: 100 MG/M2 ON DAY 1-7 OF WEEKS 1,5 AND 9
     Route: 048
  10. DEXAMETHASONE [Suspect]
     Active Substance: DEXAMETHASONE
     Indication: Non-Hodgkin^s lymphoma stage IV
     Dosage: 16 MG/DAY FOR WEEK 1
     Route: 048
  11. DEXAMETHASONE [Suspect]
     Active Substance: DEXAMETHASONE
     Dosage: 12 MG/DAY FOR WEEK 2
     Route: 048
  12. DEXAMETHASONE [Suspect]
     Active Substance: DEXAMETHASONE
     Dosage: 8.MG/DAY FOR WEEK 3, 6 MG/DAY FOR WEEK 4, 4 MG/DAY FOR WEEK 5 AND 2 MG/DAY FOR WEEK 6
     Route: 048
  13. DEXAMETHASONE [Suspect]
     Active Substance: DEXAMETHASONE
     Dosage: 6 MG/DAY FOR WEEK 4, 4 MG/DAY FOR WEEK 5 AND 2 MG/DAY FOR WEEK 6
     Route: 048
  14. DEXAMETHASONE [Suspect]
     Active Substance: DEXAMETHASONE
     Dosage: 4 MG/DAY FOR WEEK 5 AND 2 MG/DAY FOR WEEK 6
     Route: 048
  15. DEXAMETHASONE [Suspect]
     Active Substance: DEXAMETHASONE
     Dosage: 2 MG/DAY FOR WEEK 6
     Route: 048
  16. CYTARABINE [Suspect]
     Active Substance: CYTARABINE
     Indication: Non-Hodgkin^s lymphoma stage IV
     Dosage: 3000 MG/DAY ON DAY 1 AND DAY 2 FOR WEEK 16 AND WEEK 19
     Route: 042
  17. LEUCOVORIN [Concomitant]
     Active Substance: LEUCOVORIN
     Indication: Product used for unknown indication

REACTIONS (4)
  - Drug ineffective for unapproved indication [Unknown]
  - Nervous system disorder [Recovered/Resolved]
  - Disease progression [Recovered/Resolved]
  - Gene mutation [Unknown]
